FAERS Safety Report 8525808-2 (Version None)
Quarter: 2012Q3

REPORT INFORMATION
  Report Type: 
  Country: None (occurrence: None)
  Receive Date: 20120720
  Receipt Date: 20120712
  Transmission Date: 20120928
  Serious: Yes (Hospitalization, Disabling, Other)
  Sender: FDA-Public Use
  Company Number: US-009507513-1203USA03300

PATIENT

DRUGS (4)
  1. FOSAMAX [Suspect]
     Indication: OSTEOPOROSIS
     Dosage: 10 MG, UNK
     Route: 048
     Dates: start: 20000501, end: 20010301
  2. MK-9278 [Concomitant]
  3. HORMONES (UNSPECIFIED) [Concomitant]
     Route: 048
     Dates: start: 19720101, end: 20080101
  4. FOSAMAX [Suspect]
     Dosage: 70 MG, UNK
     Route: 048
     Dates: start: 20010301, end: 20050701

REACTIONS (15)
  - FALL [None]
  - OSTEOARTHRITIS [None]
  - FEMUR FRACTURE [None]
  - GINGIVAL DISORDER [None]
  - UPPER LIMB FRACTURE [None]
  - TOOTH ABSCESS [None]
  - GINGIVAL INFECTION [None]
  - PELVIC FRACTURE [None]
  - BONE DISORDER [None]
  - PAIN IN EXTREMITY [None]
  - LUNG NEOPLASM [None]
  - ARTHROPATHY [None]
  - TOOTH DISORDER [None]
  - BLOOD DISORDER [None]
  - FRACTURE NONUNION [None]
